FAERS Safety Report 5144166-7 (Version None)
Quarter: 2006Q4

REPORT INFORMATION
  Report Type: 
  Country: None (occurrence: None)
  Receive Date: 20061030
  Receipt Date: 20061017
  Transmission Date: 20070319
  Serious: Yes (Other)
  Sender: FDA-Public Use
  Company Number: FR200610002747

PATIENT
  Age: 76 Year
  Sex: Female

DRUGS (5)
  1. FORTEO [Suspect]
     Indication: OSTEOPOROSIS
     Dosage: 20 UG, DAILY (1/D) SUBCUTANEOUS
     Route: 058
     Dates: start: 20050905
  2. FORTEO [Concomitant]
  3. DISCOTRINE (GLYCERYL TRINITRATE) [Concomitant]
  4. DESFERAL (DEFEROXAMINE MESILATE) [Concomitant]
  5. TRAMADOL HCL [Concomitant]

REACTIONS (2)
  - PATHOLOGICAL FRACTURE [None]
  - SPINAL FRACTURE [None]
